FAERS Safety Report 5094932-1 (Version None)
Quarter: 2006Q3

REPORT INFORMATION
  Report Type: 
  Country: None (occurrence: None)
  Receive Date: 20060901
  Receipt Date: 20060117
  Transmission Date: 20061208
  Serious: Yes (Death, Hospitalization, Other)
  Sender: FDA-Public Use
  Company Number: FR-BAYER-200610073BFR

PATIENT
  Age: 66 Year
  Sex: Male
  Weight: 87 kg

DRUGS (11)
  1. SORAFENIB [Suspect]
     Indication: METASTATIC RENAL CELL CARCINOMA
     Dosage: TOTAL DAILY DOSE: 800 MG  UNIT DOSE: 200 MG
     Route: 048
     Dates: start: 20051121, end: 20060104
  2. SORAFENIB [Suspect]
     Dosage: TOTAL DAILY DOSE: 800 MG  UNIT DOSE: 200 MG
     Route: 048
     Dates: start: 20031202, end: 20050612
  3. SORAFENIB [Suspect]
     Dosage: TOTAL DAILY DOSE: 800 MG  UNIT DOSE: 200 MG
     Route: 048
     Dates: start: 20050613
  4. SORAFENIB [Suspect]
     Dosage: TOTAL DAILY DOSE: 800 MG  UNIT DOSE: 200 MG
     Route: 048
     Dates: start: 20050927, end: 20051121
  5. ZOCOR [Concomitant]
     Indication: HYPERCHOLESTEROLAEMIA
     Dates: start: 20050211, end: 20060128
  6. DEXERYL [Concomitant]
     Indication: XERODERMA
     Route: 061
     Dates: start: 20040223, end: 20060128
  7. IMODIUM [Concomitant]
     Indication: DIARRHOEA
     Dates: start: 20050902, end: 20050906
  8. BIAFINE [Concomitant]
     Indication: PALMAR-PLANTAR ERYTHRODYSAESTHESIA SYNDROME
     Route: 061
     Dates: start: 20050901, end: 20060101
  9. TIORFAN [Concomitant]
     Indication: CONSTIPATION
     Dates: start: 20050901, end: 20050901
  10. TRIFLUCAN [Concomitant]
     Indication: CONSTIPATION
     Dates: start: 20050901, end: 20050901
  11. CIFLOX [Concomitant]
     Indication: CONSTIPATION
     Dates: start: 20050901, end: 20050901

REACTIONS (7)
  - ABDOMINAL DISTENSION [None]
  - ABDOMINAL PAIN [None]
  - ASTHENIA [None]
  - GENERAL PHYSICAL HEALTH DETERIORATION [None]
  - HEPATOMEGALY [None]
  - MALIGNANT NEOPLASM PROGRESSION [None]
  - METASTATIC RENAL CELL CARCINOMA [None]
